FAERS Safety Report 9341430 (Version 1)
Quarter: 2013Q2

REPORT INFORMATION
  Report Type: Spontaneous
  Country: US (occurrence: None)
  Receive Date: 20130610
  Receipt Date: 20130610
  Transmission Date: 20140414
  Serious: Yes (Life-Threatening, Hospitalization)
  Sender: FDA-Public Use
  Company Number: None

PATIENT
  Age: 54 Year
  Sex: Female
  Weight: 67.13 kg

DRUGS (1)
  1. LEVOTHYROXINE [Suspect]
     Indication: THYROID HORMONE REPLACEMENT THERAPY
     Route: 048
     Dates: start: 201202

REACTIONS (9)
  - Dizziness [None]
  - Headache [None]
  - Fatigue [None]
  - Hyperhidrosis [None]
  - Loss of consciousness [None]
  - Head injury [None]
  - Tooth fracture [None]
  - Joint injury [None]
  - Face injury [None]
